FAERS Safety Report 14854891 (Version 1)
Quarter: 2018Q2

REPORT INFORMATION
  Report Type: Spontaneous
  Country: US (occurrence: US)
  Receive Date: 20180420
  Receipt Date: 20180420
  Transmission Date: 20180711
  Serious: Yes (Other)
  Sender: FDA-Public Use
  Company Number: None

PATIENT
  Age: 51 Year
  Weight: 114.75 kg

DRUGS (1)
  1. GAMUNEX [Suspect]
     Active Substance: HUMAN IMMUNOGLOBULIN G
     Indication: NEUROPATHY PERIPHERAL
     Dosage: ?          OTHER FREQUENCY:DAILY  4 DAYS QM;?
     Route: 042
     Dates: start: 20171115, end: 20180326

REACTIONS (3)
  - Palpitations [None]
  - Fatigue [None]
  - Hypertension [None]

NARRATIVE: CASE EVENT DATE: 20180326
